FAERS Safety Report 11490899 (Version 5)
Quarter: 2015Q4

REPORT INFORMATION
  Report Type: Spontaneous
  Country: ES (occurrence: ES)
  Receive Date: 20150910
  Receipt Date: 20151116
  Transmission Date: 20160304
  Serious: Yes (Other)
  Sender: FDA-Public Use
  Company Number: ES-009507513-1507ESP009423

PATIENT
  Age: 25 Year
  Sex: Female

DRUGS (1)
  1. NUVARING [Suspect]
     Active Substance: ETHINYL ESTRADIOL\ETONOGESTREL
     Indication: POLYCYSTIC OVARIES
     Dosage: STRENGHT: ETONOGESTREL 0.120MG / ETHYNILESTRADIOL 0.015
     Route: 067
     Dates: start: 201507, end: 201507

REACTIONS (4)
  - Adverse event [Unknown]
  - Noninfective encephalitis [Unknown]
  - Optic neuritis [Recovered/Resolved]
  - Off label use [Unknown]

NARRATIVE: CASE EVENT DATE: 2015
